FAERS Safety Report 18286398 (Version 2)
Quarter: 2020Q4

REPORT INFORMATION
  Report Type: Spontaneous
  Country: US (occurrence: US)
  Receive Date: 20200920
  Receipt Date: 20201009
  Transmission Date: 20210113
  Serious: Yes (Hospitalization, Other)
  Sender: FDA-Public Use
  Company Number: US-UNITED THERAPEUTICS-UNT-2020-012787

PATIENT
  Age: 49 Year
  Sex: Female

DRUGS (7)
  1. REMODULIN [Suspect]
     Active Substance: TREPROSTINIL
     Dosage: 0.0031 ?G/KG, CONTINUING
     Route: 058
     Dates: start: 20200812
  2. REMODULIN [Suspect]
     Active Substance: TREPROSTINIL
     Dosage: 0.0242 ?G/KG, CONTINUING
     Route: 058
     Dates: start: 20200820
  3. REMODULIN [Suspect]
     Active Substance: TREPROSTINIL
     Dosage: 0.0115 ?G/KG, CONTINUING
     Route: 058
     Dates: start: 2020
  4. REMODULIN [Suspect]
     Active Substance: TREPROSTINIL
     Dosage: 0.0242 ?G/KG, CONTINUING
     Route: 058
     Dates: start: 20200811
  5. UPTRAVI [Suspect]
     Active Substance: SELEXIPAG
     Indication: PRODUCT USED FOR UNKNOWN INDICATION
     Dosage: UNK
     Route: 065
     Dates: start: 20191211
  6. REMODULIN [Suspect]
     Active Substance: TREPROSTINIL
     Indication: PULMONARY ARTERIAL HYPERTENSION
     Dosage: UNK, CONTINUING
     Route: 058
     Dates: start: 20200731
  7. ADEMPAS [Suspect]
     Active Substance: RIOCIGUAT
     Indication: PRODUCT USED FOR UNKNOWN INDICATION
     Dosage: UNK (1.5 MG)
     Route: 065

REACTIONS (14)
  - Ascites [Unknown]
  - Dizziness postural [Unknown]
  - Cellulitis [Unknown]
  - Diarrhoea [Unknown]
  - Weight increased [Unknown]
  - Infusion site pain [Unknown]
  - Infusion site warmth [Unknown]
  - Deep vein thrombosis [Unknown]
  - Sepsis [Unknown]
  - Abdominal distension [Unknown]
  - Infusion site erythema [Unknown]
  - Infusion site swelling [Unknown]
  - Pain in jaw [Unknown]
  - Oedema peripheral [Unknown]

NARRATIVE: CASE EVENT DATE: 2020
